FAERS Safety Report 5738572-7 (Version None)
Quarter: 2008Q2

REPORT INFORMATION
  Report Type: 
  Country: None (occurrence: None)
  Receive Date: 20080513
  Receipt Date: 20080410
  Transmission Date: 20081010
  Serious: Yes (Hospitalization)
  Sender: FDA-Public Use
  Company Number: 2008S1006002

PATIENT
  Age: 61 Year
  Sex: Male

DRUGS (9)
  1. TENOFOVIR DISOPROXIL FUMARATE [Suspect]
     Indication: HIV INFECTION
  2. NAPROXEN [Suspect]
     Dosage: 500 MG; TWICE A DAY
  3. COCAINE (COCAINE) [Suspect]
  4. ANTIRETROVIRALS (NO PREF. NAME) (PREV.) [Concomitant]
  5. LAMIVUDINE (LAMIVUDINE) (CON.) [Concomitant]
  6. KALETRA /01506501/ (KALETRA /01506501/) (CON.) [Concomitant]
  7. OLANZAPINE (OLANZAPINE) (CON.) [Concomitant]
  8. PAROXETINE (PAROXETINE) (CON.) [Concomitant]
  9. BUPROPION (BUPROPION) (CON.) [Concomitant]

REACTIONS (5)
  - DRUG TOXICITY [None]
  - HAEMATEMESIS [None]
  - HEMIPARESIS [None]
  - RENAL FAILURE ACUTE [None]
  - RHABDOMYOLYSIS [None]
